FAERS Safety Report 21995011 (Version 2)
Quarter: 2023Q4

REPORT INFORMATION
  Report Type: Other
  Country: CN (occurrence: None)
  Receive Date: 20230215
  Receipt Date: 20231214
  Transmission Date: 20240110
  Serious: Yes (Death, Other)
  Sender: FDA-Public Use
  Company Number: CN-ROCHE-2764717

PATIENT
  Age: 43 Year
  Sex: Female
  Weight: 52 kg

DRUGS (2)
  1. AVASTIN [Suspect]
     Active Substance: BEVACIZUMAB
     Indication: Non-small cell lung cancer
     Dosage: 100MG
     Route: 041
     Dates: start: 20170918, end: 20220105
  2. AVASTIN [Suspect]
     Active Substance: BEVACIZUMAB
     Dosage: 100MG
     Route: 041

REACTIONS (10)
  - Headache [Unknown]
  - Dizziness [Unknown]
  - Albumin urine present [Unknown]
  - Lymphadenopathy [Not Recovered/Not Resolved]
  - Pneumonitis [Not Recovered/Not Resolved]
  - Coronavirus test positive [Unknown]
  - Pneumonitis [Not Recovered/Not Resolved]
  - Bone disorder [Not Recovered/Not Resolved]
  - Tumour compression [Fatal]
  - Pyrexia [Fatal]

NARRATIVE: CASE EVENT DATE: 20211201
